FAERS Safety Report 18568761 (Version 1)
Quarter: 2020Q4

REPORT INFORMATION
  Report Type: Spontaneous
  Country: US (occurrence: US)
  Receive Date: 20201202
  Receipt Date: 20201202
  Transmission Date: 20210114
  Serious: Yes (Other)
  Sender: FDA-Public Use
  Company Number: NVSC2020US317250

PATIENT
  Age: 17 Year
  Sex: Female
  Weight: 49.8 kg

DRUGS (8)
  1. CYCLOPHOSPHAMIDE. [Concomitant]
     Active Substance: CYCLOPHOSPHAMIDE
     Indication: PINEALOBLASTOMA
     Dosage: CYCLE 3 OF INDUCTION CHEMOTHERAPY
     Route: 065
  2. METHOTREXATE. [Suspect]
     Active Substance: METHOTREXATE
     Indication: PINEALOBLASTOMA
     Dosage: 8000 MG/M2, CYCLE 1
     Route: 065
  3. METHOTREXATE. [Suspect]
     Active Substance: METHOTREXATE
     Dosage: 5000 MG/M2, CYCLE 2
     Route: 065
  4. GLUCARPIDASE [Concomitant]
     Active Substance: GLUCARPIDASE
     Indication: DRUG CLEARANCE DECREASED
     Dosage: UNK
     Route: 042
  5. METHOTREXATE. [Suspect]
     Active Substance: METHOTREXATE
     Dosage: 5000 MG/M2, CYCLE 3
     Route: 065
  6. CISPLATIN. [Concomitant]
     Active Substance: CISPLATIN
     Indication: PINEALOBLASTOMA
     Dosage: CYCLE 3 OF INDUCTION CHEMOTHERAPY
     Route: 065
  7. LEUCOVORIN. [Concomitant]
     Active Substance: LEUCOVORIN
     Indication: PRODUCT USED FOR UNKNOWN INDICATION
     Dosage: 15 MG/M2, Q6H (INITIATED 24 H AFTER HDMTX ADMINISTRATION)
     Route: 042
  8. ETOPOSIDE. [Concomitant]
     Active Substance: ETOPOSIDE
     Indication: PINEALOBLASTOMA
     Dosage: CYCLE 3 OF INDUCTION CHEMOTHERAPY
     Route: 065

REACTIONS (4)
  - Dysphagia [Recovered/Resolved]
  - Product use in unapproved indication [Unknown]
  - Dysarthria [Recovered/Resolved]
  - Encephalopathy [Recovered/Resolved]
